FAERS Safety Report 5726875-1 (Version None)
Quarter: 2008Q2

REPORT INFORMATION
  Report Type: 
  Country: None (occurrence: None)
  Receive Date: 20080502
  Receipt Date: 20080420
  Transmission Date: 20081010
  Serious: Yes (Other)
  Sender: FDA-Public Use
  Company Number: US-PFIZER INC-2008036358

PATIENT
  Sex: Female
  Weight: 67.2 kg

DRUGS (2)
  1. CHANTIX [Suspect]
     Indication: SMOKING CESSATION THERAPY
     Route: 048
     Dates: start: 20080301, end: 20080417
  2. BENADRYL [Concomitant]

REACTIONS (2)
  - VISION BLURRED [None]
  - WEIGHT DECREASED [None]
